FAERS Safety Report 16071389 (Version 5)
Quarter: 2020Q1

REPORT INFORMATION
  Report Type: Spontaneous
  Country: US (occurrence: US)
  Receive Date: 20190314
  Receipt Date: 20200327
  Transmission Date: 20200409
  Serious: Yes (Other)
  Sender: FDA-Public Use
  Company Number: US-PFIZER INC-2019106942

PATIENT
  Age: 64 Year
  Sex: Male
  Weight: 133.81 kg

DRUGS (4)
  1. XELJANZ [Suspect]
     Active Substance: TOFACITINIB CITRATE
     Dosage: 5 MG, 1X/DAY
  2. METHOTREXATE. [Suspect]
     Active Substance: METHOTREXATE
     Indication: RHEUMATOID ARTHRITIS
     Dosage: 10 MG, WEEKLY
     Route: 048
     Dates: start: 2018
  3. METHOTREXATE. [Suspect]
     Active Substance: METHOTREXATE
     Dosage: 4 DF, WEEKLY (4 TABLETS PER WEEK)
  4. XELJANZ [Suspect]
     Active Substance: TOFACITINIB CITRATE
     Indication: RHEUMATOID ARTHRITIS
     Dosage: 5 MG, 2X/DAY
     Route: 048
     Dates: end: 2018

REACTIONS (8)
  - Therapeutic product effect incomplete [Unknown]
  - Renal disorder [Unknown]
  - Liver disorder [Unknown]
  - Condition aggravated [Unknown]
  - Pain in extremity [Unknown]
  - Intentional product use issue [Unknown]
  - Diabetes mellitus [Unknown]
  - Dehydration [Unknown]

NARRATIVE: CASE EVENT DATE: 2018
